FAERS Safety Report 17530926 (Version 3)
Quarter: 2020Q2

REPORT INFORMATION
  Report Type: Report from Study
  Country: US (occurrence: US)
  Receive Date: 20200312
  Receipt Date: 20200612
  Transmission Date: 20200713
  Serious: Yes (Life-Threatening, Other)
  Sender: FDA-Public Use
  Company Number: US-B.I. PHARMACEUTICALS,INC./RIDGEFIELD-2019-BI-101687

PATIENT
  Sex: Male

DRUGS (1)
  1. OFEV [Suspect]
     Active Substance: NINTEDANIB
     Indication: PULMONARY HYPERTENSION
     Dosage: TAKE 1 CAPSULE BY MOUTH TWICE A DAY
     Route: 048
     Dates: end: 20191007

REACTIONS (12)
  - Nausea [Unknown]
  - Prostate cancer [Not Recovered/Not Resolved]
  - Diarrhoea [Recovered/Resolved]
  - Feeling abnormal [Unknown]
  - Urinary tract infection [Unknown]
  - Hot flush [Unknown]
  - Drug intolerance [Unknown]
  - Dysgeusia [Unknown]
  - Dyspnoea exertional [Unknown]
  - Abdominal pain upper [Not Recovered/Not Resolved]
  - Metastases to lymph nodes [Not Recovered/Not Resolved]
  - Dyspnoea [Unknown]
